FAERS Safety Report 5849690-7 (Version None)
Quarter: 2008Q3

REPORT INFORMATION
  Report Type: 
  Country: None (occurrence: None)
  Receive Date: 20080815
  Receipt Date: 20080805
  Transmission Date: 20090109
  Serious: Yes (Life-Threatening)
  Sender: FDA-Public Use
  Company Number: 08GB001081

PATIENT
  Age: 36 Year
  Sex: Male

DRUGS (6)
  1. PAROXETINE HCL [Suspect]
     Indication: ANXIETY DISORDER
     Dosage: 20 UG UNK ORAL
     Route: 048
     Dates: start: 20020101, end: 20070701
  2. ACETYLSALICYLIC ACID SRT [Concomitant]
  3. SIMVASTATIN [Concomitant]
  4. ATENOLOL [Concomitant]
  5. FLUPENTIXOL (FLUPENTIXOL) [Concomitant]
  6. PROCYCLIDINE HYDROCHLORIDE 2MG TAB [Concomitant]

REACTIONS (1)
  - SUBDURAL HAEMORRHAGE [None]
